FAERS Safety Report 5041534-9 (Version None)
Quarter: 2006Q2

REPORT INFORMATION
  Report Type: 
  Country: None (occurrence: None)
  Receive Date: 20060627
  Receipt Date: 20060620
  Transmission Date: 20061013
  Serious: Yes (Other)
  Sender: FDA-Public Use
  Company Number: 2006078069

PATIENT
  Age: 35 Year
  Sex: Male
  Weight: 136.0791 kg

DRUGS (3)
  1. UNISOM [Suspect]
     Indication: SLEEP DISORDER
     Dosage: 1-2 LIQUID CAPS PER NIGHT OR AS NEEDED, ORAL
     Route: 048
     Dates: start: 20050101
  2. HYDROCHLOROTHIAZIDE [Concomitant]
  3. SULTOPRIDE (SULTOPRIDE) [Concomitant]

REACTIONS (1)
  - DRUG DEPENDENCE [None]
